FAERS Safety Report 18009639 (Version 3)
Quarter: 2020Q3

REPORT INFORMATION
  Report Type: Spontaneous
  Country: US (occurrence: US)
  Receive Date: 20200710
  Receipt Date: 20200911
  Transmission Date: 20201103
  Serious: No
  Sender: FDA-Public Use
  Company Number: US-BAYER-2020-128888

PATIENT
  Age: 58 Year
  Sex: Female

DRUGS (2)
  1. STIVARGA [Suspect]
     Active Substance: REGORAFENIB
     Indication: COLON CANCER
     Dosage: 160 MG DAILY X 21 DAYS REST 7 DAYS
     Route: 048
     Dates: start: 20200504
  2. STIVARGA [Suspect]
     Active Substance: REGORAFENIB
     Indication: COLON CANCER
     Dosage: 160 MG DAILY 21 DAYS REST 7 DAYS
     Dates: start: 20200626

REACTIONS (6)
  - Diarrhoea [None]
  - Pain of skin [Unknown]
  - Skin fissures [Not Recovered/Not Resolved]
  - Palmar-plantar erythrodysaesthesia syndrome [None]
  - Pain of skin [Not Recovered/Not Resolved]
  - Skin discomfort [Unknown]
